FAERS Safety Report 4541112-1 (Version None)
Quarter: 2004Q4

REPORT INFORMATION
  Report Type: 
  Country: None (occurrence: None)
  Receive Date: 20041228
  Receipt Date: 20041210
  Transmission Date: 20050328
  Serious: Yes (Death)
  Sender: FDA-Public Use
  Company Number: A01200406328

PATIENT
  Sex: Female

DRUGS (1)
  1. MILRILA - (MILRINONE) - SOLUTION - UNIT DOSE : UNKNOWN [Suspect]
     Route: 041

REACTIONS (1)
  - PATENT DUCTUS ARTERIOSUS [None]
